FAERS Safety Report 11198559 (Version 1)
Quarter: 2015Q2

REPORT INFORMATION
  Report Type: Spontaneous
  Country: US (occurrence: US)
  Receive Date: 20150618
  Receipt Date: 20150618
  Transmission Date: 20150821
  Serious: No
  Sender: FDA-Public Use
  Company Number: US-ACCORD-027260

PATIENT
  Age: 47 Year
  Sex: Female

DRUGS (2)
  1. MYCOPHENOLATE ACCORD [Suspect]
     Active Substance: MYCOPHENOLIC ACID
     Indication: RENAL TRANSPLANT
     Dosage: 2 CAPSULES TWICE DAILY
     Route: 048
     Dates: start: 20141112
  2. PREDNISONE. [Concomitant]
     Active Substance: PREDNISONE

REACTIONS (1)
  - Nervousness [Not Recovered/Not Resolved]
